FAERS Safety Report 20649821 (Version 1)
Quarter: 2022Q1

REPORT INFORMATION
  Report Type: Report from Study
  Country: GB (occurrence: GB)
  Receive Date: 20220329
  Receipt Date: 20220329
  Transmission Date: 20220423
  Serious: Yes (Other)
  Sender: FDA-Public Use
  Company Number: GB-AMGEN-GBRNI2022051802

PATIENT
  Age: 74 Year

DRUGS (8)
  1. AMG-510 [Suspect]
     Active Substance: AMG-510
     Indication: Non-small cell lung cancer metastatic
     Dosage: UNK
     Route: 065
     Dates: start: 20210312, end: 20210509
  2. AMG-510 [Suspect]
     Active Substance: AMG-510
     Indication: K-ras gene mutation
  3. PERINDOPRIL [Concomitant]
     Active Substance: PERINDOPRIL
  4. PREDNISOLONE [Concomitant]
     Active Substance: PREDNISOLONE
  5. APIXABAN [Concomitant]
     Active Substance: APIXABAN
  6. SIMVASTATIN [Concomitant]
     Active Substance: SIMVASTATIN
  7. SOLPADEINE [CODEINE PHOSPHATE;PARACETAMOL] [Concomitant]
  8. TRAMADOL [Concomitant]
     Active Substance: TRAMADOL

REACTIONS (1)
  - Non-small cell lung cancer [Unknown]
